FAERS Safety Report 23289763 (Version 1)
Quarter: 2023Q4

REPORT INFORMATION
  Report Type: Other
  Country: US (occurrence: US)
  Receive Date: 20231212
  Receipt Date: 20231212
  Transmission Date: 20240109
  Serious: Yes (Other)
  Sender: FDA-Public Use
  Company Number: US-Rhythm Pharmaceuticals, Inc.-2023RHM000187

PATIENT
  Age: 14 Year
  Sex: Male

DRUGS (6)
  1. IMCIVREE [Suspect]
     Active Substance: SETMELANOTIDE
     Indication: Off label use
     Route: 058
  2. IMCIVREE [Suspect]
     Active Substance: SETMELANOTIDE
     Route: 058
  3. IMCIVREE [Suspect]
     Active Substance: SETMELANOTIDE
     Route: 058
  4. IMCIVREE [Suspect]
     Active Substance: SETMELANOTIDE
     Route: 058
  5. VITAMIN D [Concomitant]
     Active Substance: VITAMIN D NOS
     Indication: Product used for unknown indication
     Route: 065
  6. CANNABIDIOL\HERBALS [Concomitant]
     Active Substance: CANNABIDIOL\HERBALS
     Indication: Product used for unknown indication
     Route: 065

REACTIONS (13)
  - Anaphylactic shock [Recovering/Resolving]
  - Chest discomfort [Not Recovered/Not Resolved]
  - Dyspnoea [Recovered/Resolved]
  - Anxiety [Recovered/Resolved]
  - Weight loss poor [Unknown]
  - Off label use [Not Recovered/Not Resolved]
  - Product dose omission issue [Recovered/Resolved]
  - Decreased appetite [Unknown]
  - Weight decreased [Unknown]
  - Increased appetite [Unknown]
  - Sinus disorder [Recovered/Resolved]
  - Feeling hot [Not Recovered/Not Resolved]
  - Fatigue [Not Recovered/Not Resolved]

NARRATIVE: CASE EVENT DATE: 20230510
